FAERS Safety Report 19833377 (Version 2)
Quarter: 2021Q3

REPORT INFORMATION
  Report Type: Report from Study
  Country: DE (occurrence: DE)
  Receive Date: 20210915
  Receipt Date: 20210922
  Transmission Date: 20211014
  Serious: Yes (Hospitalization, Other)
  Sender: FDA-Public Use
  Company Number: DE-MYLANLABS-2021M1061652

PATIENT
  Sex: Female
  Weight: 115 kg

DRUGS (5)
  1. IBUPROFEN. [Suspect]
     Active Substance: IBUPROFEN
     Dosage: 500 MILLIGRAM, PRN, UP TO 3 TIMES PER DAY
     Route: 048
     Dates: start: 202011, end: 20201114
  2. IBUPROFEN. [Suspect]
     Active Substance: IBUPROFEN
     Indication: PAIN
     Dosage: 500MG (500 MG UP TO 3 TIMES PER DAY)
     Route: 048
     Dates: end: 20201114
  3. JAKAVI [Suspect]
     Active Substance: RUXOLITINIB
     Dosage: 20 MILLIGRAM, QD (10 MG, BID)
     Route: 048
     Dates: start: 20200707, end: 20201120
  4. BISOPROLOL [Concomitant]
     Active Substance: BISOPROLOL
     Indication: HYPERTENSION
     Dosage: 10 MILLIGRAM, QD (10 MG, 1X/DAY)
     Route: 048
     Dates: start: 20170808
  5. JAKAVI [Suspect]
     Active Substance: RUXOLITINIB
     Indication: POLYCYTHAEMIA VERA
     Dosage: 30 MILLIGRAM, QD (15 MG, BID)
     Route: 048
     Dates: start: 20200522, end: 20200706

REACTIONS (2)
  - Abdominal distension [Unknown]
  - Upper gastrointestinal haemorrhage [Recovered/Resolved]

NARRATIVE: CASE EVENT DATE: 202011
